FAERS Safety Report 25749706 (Version 1)
Quarter: 2025Q3

REPORT INFORMATION
  Report Type: Report from Study
  Country: CA (occurrence: CA)
  Receive Date: 20250902
  Receipt Date: 20250902
  Transmission Date: 20251020
  Serious: Yes (Hospitalization, Other)
  Sender: BIOCON
  Company Number: CA-BIOCON BIOLOGICS LIMITED-BBL2025004759

PATIENT

DRUGS (2)
  1. ADALIMUMAB [Suspect]
     Active Substance: ADALIMUMAB
     Indication: Psoriatic arthropathy
     Route: 058
  2. MEASLES MUMPS + RUBELLA LIVE ATTENUATED (FREE [Concomitant]
     Indication: Product used for unknown indication
     Route: 065

REACTIONS (6)
  - Myocardial infarction [Unknown]
  - Psoriatic arthropathy [Unknown]
  - Product dose omission issue [Unknown]
  - Labelled drug-drug interaction issue [Unknown]
  - Intentional dose omission [Unknown]
  - Device malfunction [Unknown]
